FAERS Safety Report 6176276-X (Version None)
Quarter: 2009Q2

REPORT INFORMATION
  Report Type: 
  Country: None (occurrence: None)
  Receive Date: 20090501
  Receipt Date: 20090428
  Transmission Date: 20091009
  Serious: Yes (Hospitalization)
  Sender: FDA-Public Use
  Company Number: B0572141B

PATIENT
  Sex: Female

DRUGS (4)
  1. COMBIVIR [Suspect]
     Indication: HIV INFECTION
     Route: 048
     Dates: start: 20080814, end: 20081007
  2. KALETRA [Suspect]
     Indication: HIV INFECTION
     Dosage: 2UNIT TWICE PER DAY
     Route: 048
     Dates: start: 20080814, end: 20090213
  3. TRUVADA [Suspect]
     Indication: HIV INFECTION
     Dosage: 1UNIT PER DAY
     Route: 048
     Dates: start: 20081007
  4. CORTICOTHERAPY [Concomitant]
     Route: 065
     Dates: start: 20090213, end: 20090214

REACTIONS (3)
  - DRUG EXPOSURE DURING PREGNANCY [None]
  - PLACENTAL DISORDER [None]
  - PLACENTAL INFARCTION [None]
